FAERS Safety Report 24588107 (Version 1)
Quarter: 2024Q4

REPORT INFORMATION
  Report Type: Spontaneous
  Country: GB (occurrence: GB)
  Receive Date: 20241107
  Receipt Date: 20241107
  Transmission Date: 20250115
  Serious: Yes (Other)
  Sender: BRISTOL-MYERS SQUIBB COMPANY
  Company Number: GB-BRISTOL-MYERS SQUIBB COMPANY-2024-174199

PATIENT
  Age: 67 Year
  Sex: Male

DRUGS (16)
  1. LENALIDOMIDE [Suspect]
     Active Substance: LENALIDOMIDE
     Indication: Plasma cell myeloma
  2. LENALIDOMIDE [Suspect]
     Active Substance: LENALIDOMIDE
  3. LENALIDOMIDE [Suspect]
     Active Substance: LENALIDOMIDE
  4. POMALIDOMIDE [Suspect]
     Active Substance: POMALIDOMIDE
     Indication: Plasma cell myeloma
  5. THALIDOMIDE [Suspect]
     Active Substance: THALIDOMIDE
     Indication: Plasma cell myeloma
  6. DEXAMETHASONE [Suspect]
     Active Substance: DEXAMETHASONE
     Indication: Plasma cell myeloma
  7. DEXAMETHASONE [Suspect]
     Active Substance: DEXAMETHASONE
  8. DEXAMETHASONE [Suspect]
     Active Substance: DEXAMETHASONE
  9. DEXAMETHASONE [Suspect]
     Active Substance: DEXAMETHASONE
  10. DEXAMETHASONE [Suspect]
     Active Substance: DEXAMETHASONE
  11. MELPHALAN [Suspect]
     Active Substance: MELPHALAN
     Indication: Plasma cell myeloma
  12. IXAZOMIB [Suspect]
     Active Substance: IXAZOMIB
     Indication: Plasma cell myeloma
  13. VELCADE [Suspect]
     Active Substance: BORTEZOMIB
     Indication: Plasma cell myeloma
     Dosage: MAINTENANCE
  14. VELCADE [Suspect]
     Active Substance: BORTEZOMIB
  15. CYCLOPHOSPHAMIDE [Suspect]
     Active Substance: CYCLOPHOSPHAMIDE
     Indication: Plasma cell myeloma
  16. ISATUXIMAB [Suspect]
     Active Substance: ISATUXIMAB
     Indication: Plasma cell myeloma

REACTIONS (1)
  - Myelodysplastic syndrome with excess blasts [Unknown]
